FAERS Safety Report 9802229 (Version 1)
Quarter: 2014Q1

REPORT INFORMATION
  Report Type: Spontaneous
  Country: US (occurrence: US)
  Receive Date: 20140107
  Receipt Date: 20140107
  Transmission Date: 20141002
  Serious: No
  Sender: FDA-Public Use
  Company Number: US-TEVA-454898USA

PATIENT
  Age: 35 Year
  Sex: Female
  Weight: 63.56 kg

DRUGS (1)
  1. PLAN B ONE-STEP [Suspect]
     Indication: POST COITAL CONTRACEPTION
     Dosage: 1.5 MILLIGRAM DAILY;
     Route: 048
     Dates: start: 20131220, end: 20131220

REACTIONS (4)
  - Back pain [Not Recovered/Not Resolved]
  - Breast pain [Not Recovered/Not Resolved]
  - Pelvic pain [Not Recovered/Not Resolved]
  - Menstruation irregular [Not Recovered/Not Resolved]
